FAERS Safety Report 6090009-7 (Version None)
Quarter: 2009Q1

REPORT INFORMATION
  Report Type: 
  Country: None (occurrence: None)
  Receive Date: 20090220
  Receipt Date: 20090216
  Transmission Date: 20090719
  Serious: Yes (Death, Hospitalization)
  Sender: FDA-Public Use
  Company Number: TPA2008A01984

PATIENT
  Age: 53 Year
  Sex: Male
  Weight: 104.3273 kg

DRUGS (5)
  1. ACTOS [Suspect]
     Indication: TYPE 2 DIABETES MELLITUS
     Dosage: 15 MG, 1 IN 1 D, PER ORAL
     Route: 048
     Dates: start: 20070330, end: 20080710
  2. HYDROCODONE/APAP (PARACETAMOL, HYDROCODONE) [Concomitant]
  3. GLYBURIDE [Concomitant]
  4. OPANA (OXYMORPHONE HYDROCHLORIDE) [Concomitant]
  5. LISINOPRIL/HCTZ (HYDROCHLOROTHIAZIDE, LISINOPRIL) [Concomitant]

REACTIONS (2)
  - FALL [None]
  - HYPERTENSIVE HEART DISEASE [None]
